FAERS Safety Report 4818046-8 (Version None)
Quarter: 2005Q4

REPORT INFORMATION
  Report Type: 
  Country: None (occurrence: None)
  Receive Date: 20051031
  Receipt Date: 20051031
  Transmission Date: 20060501
  Serious: Yes (Hospitalization)
  Sender: FDA-Public Use
  Company Number: None

PATIENT
  Age: 86 Year
  Sex: Male
  Weight: 42.1845 kg

DRUGS (1)
  1. METOPROLOL TARTRATE [Suspect]
     Indication: ATRIAL FLUTTER
     Dosage: 75 MG PO BID
     Route: 048
     Dates: start: 20030101, end: 20050101

REACTIONS (1)
  - BRADYCARDIA [None]
